FAERS Safety Report 5908957-4 (Version None)
Quarter: 2008Q4

REPORT INFORMATION
  Report Type: 
  Country: None (occurrence: None)
  Receive Date: 20081001
  Receipt Date: 20080909
  Transmission Date: 20090506
  Serious: Yes (Death, Hospitalization)
  Sender: FDA-Public Use
  Company Number: AZANL200800170

PATIENT
  Age: 81 Year
  Sex: Male
  Weight: 78 kg

DRUGS (6)
  1. AZACITIDINE (AZACITIDINE) (INJECTION) [Suspect]
     Indication: MYELODYSPLASTIC SYNDROME
     Dosage: 75 MG/M2, DAILY X 7 DAYS), SUBCUTANEOUS
     Route: 058
     Dates: start: 20080428, end: 20080504
  2. FINASTERIDE [Concomitant]
  3. FOLIC ACID [Concomitant]
  4. SOTALOL HCL [Concomitant]
  5. FUROSEMIDE [Concomitant]
  6. ACETYLSALICYLIC ACID SRT [Concomitant]

REACTIONS (9)
  - ABDOMINAL PAIN [None]
  - CARDIAC TAMPONADE [None]
  - CARDIOPULMONARY FAILURE [None]
  - CHLOROMA [None]
  - DYSPNOEA [None]
  - HAEMATURIA [None]
  - INFECTION [None]
  - LYMPHOEDEMA [None]
  - UNRESPONSIVE TO STIMULI [None]
